FAERS Safety Report 10231875 (Version 1)
Quarter: 2014Q2

REPORT INFORMATION
  Report Type: Spontaneous
  Country: US (occurrence: US)
  Receive Date: 20140612
  Receipt Date: 20140612
  Transmission Date: 20141212
  Serious: Yes (Other)
  Sender: FDA-Public Use
  Company Number: US-BIOGENIDEC-2014BI055043

PATIENT
  Sex: Male

DRUGS (1)
  1. AVONEX [Suspect]
     Indication: LEUKAEMIA
     Route: 030

REACTIONS (2)
  - Leukaemia [Unknown]
  - Off label use [Unknown]
